FAERS Safety Report 4602520-3 (Version None)
Quarter: 2005Q1

REPORT INFORMATION
  Report Type: 
  Country: None (occurrence: None)
  Receive Date: 20050307
  Receipt Date: 20050222
  Transmission Date: 20050727
  Serious: Yes (Other)
  Sender: FDA-Public Use
  Company Number: 2005024902

PATIENT
  Age: 85 Year
  Sex: Male

DRUGS (4)
  1. VIAGRA [Suspect]
     Indication: ERECTILE DYSFUNCTION
     Dosage: ORAL
     Route: 048
     Dates: start: 20040329, end: 20040429
  2. METOPROLOL [Concomitant]
  3. LANSOPRAZOLE [Concomitant]
  4. FLUTICASONE PROPIONATE [Concomitant]

REACTIONS (3)
  - DRUG EFFECT DECREASED [None]
  - ORCHIDECTOMY [None]
  - PROSTATE CANCER [None]
